FAERS Safety Report 11535167 (Version 1)
Quarter: 2015Q3

REPORT INFORMATION
  Report Type: Spontaneous
  Country: None (occurrence: None)
  Receive Date: 20150921
  Receipt Date: 20150921
  Transmission Date: 20151125
  Serious: No
  Sender: FDA-Public Use
  Company Number: None

PATIENT
  Age: 22 Year
  Sex: Female

DRUGS (3)
  1. LIMITAL [Concomitant]
  2. PROZAC [Concomitant]
     Active Substance: FLUOXETINE HYDROCHLORIDE
  3. PERFECT PURITY OIL-FREE ACNE WASH [Suspect]
     Active Substance: SALICYLIC ACID
     Indication: ACNE

REACTIONS (2)
  - Application site pain [None]
  - Product substitution issue [None]

NARRATIVE: CASE EVENT DATE: 20150919
